FAERS Safety Report 7653730-2 (Version None)
Quarter: 2011Q3

REPORT INFORMATION
  Report Type: 
  Country: None (occurrence: None)
  Receive Date: 20110803
  Receipt Date: 20110801
  Transmission Date: 20111222
  Serious: Yes (Congenital Anomaly)
  Sender: FDA-Public Use
  Company Number: US-VIIV HEALTHCARE LIMITED-A0914071A

PATIENT

DRUGS (1)
  1. TRIZIVIR [Suspect]
     Indication: ANTIVIRAL TREATMENT
     Dosage: 2TAB PER DAY
     Route: 064
     Dates: start: 20100428

REACTIONS (2)
  - FOOT DEFORMITY [None]
  - MATERNAL EXPOSURE DURING PREGNANCY [None]
